FAERS Safety Report 4413337-7 (Version None)
Quarter: 2004Q3

REPORT INFORMATION
  Report Type: 
  Country: None (occurrence: None)
  Receive Date: 20040729
  Receipt Date: 20040720
  Transmission Date: 20050211
  Serious: Yes (Other)
  Sender: FDA-Public Use
  Company Number: 2004224498US

PATIENT
  Sex: Female

DRUGS (3)
  1. PROVERA [Suspect]
     Dates: start: 19930101, end: 19960801
  2. PREMARIN [Suspect]
     Dates: start: 19930101, end: 19960801
  3. PREMPRO [Suspect]
     Dates: start: 19930101, end: 19960801

REACTIONS (2)
  - BREAST CANCER FEMALE [None]
  - DEEP VEIN THROMBOSIS [None]
